FAERS Safety Report 8366172-1 (Version None)
Quarter: 2012Q2

REPORT INFORMATION
  Report Type: 
  Country: None (occurrence: None)
  Receive Date: 20120515
  Receipt Date: 20120430
  Transmission Date: 20120825
  Serious: Yes (Hospitalization, Other)
  Sender: FDA-Public Use
  Company Number: 2012MA005577

PATIENT
  Age: 27 Year
  Sex: Female

DRUGS (1)
  1. CHLORPROMAZINE HYDROCHLORIDE [Suspect]
     Dosage: PO
     Route: 048

REACTIONS (9)
  - NEUROLEPTIC MALIGNANT SYNDROME [None]
  - SALIVARY HYPERSECRETION [None]
  - MUSCLE RIGIDITY [None]
  - ENDOTRACHEAL INTUBATION [None]
  - ALTERED STATE OF CONSCIOUSNESS [None]
  - PNEUMONIA [None]
  - HYPERHIDROSIS [None]
  - AUTONOMIC NERVOUS SYSTEM IMBALANCE [None]
  - TACHYCARDIA [None]
